FAERS Safety Report 20058289 (Version 1)
Quarter: 2021Q4

REPORT INFORMATION
  Report Type: Spontaneous
  Country: DE (occurrence: DE)
  Receive Date: 20211111
  Receipt Date: 20211111
  Transmission Date: 20220303
  Serious: Yes (Other)
  Sender: FDA-Public Use
  Company Number: DE-002147023-NVSC2021DE238313

PATIENT
  Sex: Female

DRUGS (9)
  1. LEUCOVORIN CALCIUM [Suspect]
     Active Substance: LEUCOVORIN CALCIUM
     Indication: Renal disorder
     Dosage: FOLINIC ACID ?2 MG/M2 (06 COURSES)
     Route: 065
  2. LEUCOVORIN CALCIUM [Suspect]
     Active Substance: LEUCOVORIN CALCIUM
     Indication: Metastasis
  3. LEUCOVORIN CALCIUM [Suspect]
     Active Substance: LEUCOVORIN CALCIUM
     Indication: Spinal column injury
  4. OXALIPLATIN [Suspect]
     Active Substance: OXALIPLATIN
     Indication: Metastasis
     Dosage: 85 MG/M2 (06 COURSES)
     Route: 065
  5. OXALIPLATIN [Suspect]
     Active Substance: OXALIPLATIN
     Indication: Renal disorder
  6. OXALIPLATIN [Suspect]
     Active Substance: OXALIPLATIN
     Indication: Spinal column injury
  7. FLUOROURACIL [Suspect]
     Active Substance: FLUOROURACIL
     Indication: Renal disorder
     Dosage: 2600 MG/M2 (6 COURSES)
     Route: 065
  8. FLUOROURACIL [Suspect]
     Active Substance: FLUOROURACIL
     Indication: Spinal column injury
  9. FLUOROURACIL [Suspect]
     Active Substance: FLUOROURACIL
     Indication: Metastasis

REACTIONS (13)
  - Metastases to stomach [Unknown]
  - Metastases to lymph nodes [Unknown]
  - Metastases to lung [Unknown]
  - Urinary tract infection fungal [Unknown]
  - Metastases to abdominal cavity [Unknown]
  - Metastases to bone [Unknown]
  - Metastases to liver [Unknown]
  - Cachexia [Unknown]
  - Osteoporosis [Unknown]
  - Malnutrition [Unknown]
  - Anxiety disorder [Unknown]
  - Pain [Unknown]
  - Decreased appetite [Unknown]

NARRATIVE: CASE EVENT DATE: 20210301
